FAERS Safety Report 13136467 (Version 1)
Quarter: 2017Q1

REPORT INFORMATION
  Report Type: Spontaneous
  Country: US (occurrence: US)
  Receive Date: 20170122
  Receipt Date: 20170122
  Transmission Date: 20170428
  Serious: No
  Sender: FDA-Public Use
  Company Number: US-BIOGEN-2017BI00345116

PATIENT
  Sex: Female

DRUGS (1)
  1. AVONEX [Suspect]
     Active Substance: INTERFERON BETA-1A
     Indication: MULTIPLE SCLEROSIS
     Route: 030
     Dates: start: 200603

REACTIONS (6)
  - Oropharyngeal pain [Not Recovered/Not Resolved]
  - Lower respiratory tract congestion [Not Recovered/Not Resolved]
  - Pyrexia [Not Recovered/Not Resolved]
  - Upper respiratory tract congestion [Not Recovered/Not Resolved]
  - Viral infection [Not Recovered/Not Resolved]
  - Feeling abnormal [Not Recovered/Not Resolved]
